FAERS Safety Report 9312928 (Version 2)
Quarter: 2013Q3

REPORT INFORMATION
  Report Type: Report from Study
  Country: US (occurrence: US)
  Receive Date: 20130528
  Receipt Date: 20130828
  Transmission Date: 20140515
  Serious: No
  Sender: FDA-Public Use
  Company Number: US-ABBOTT-13P-163-1067444-00

PATIENT
  Sex: Male
  Weight: 109.87 kg

DRUGS (6)
  1. ANDROGEL [Suspect]
     Indication: HYPOGONADISM MALE
     Dosage: 3 PUMPS
     Route: 061
     Dates: start: 20081126
  2. ANDROGEL [Suspect]
     Dosage: 4 PUMPS DAILY
  3. DIOVAN [Concomitant]
     Indication: PRODUCT USED FOR UNKNOWN INDICATION
  4. NADOLOL [Concomitant]
     Indication: PRODUCT USED FOR UNKNOWN INDICATION
  5. PRAVASTATIN [Concomitant]
     Indication: PRODUCT USED FOR UNKNOWN INDICATION
  6. VYTORIN [Concomitant]
     Indication: PRODUCT USED FOR UNKNOWN INDICATION

REACTIONS (1)
  - Blood testosterone decreased [Not Recovered/Not Resolved]
